FAERS Safety Report 9664161 (Version 1)
Quarter: 2013Q4

REPORT INFORMATION
  Report Type: Spontaneous
  Country: FR (occurrence: FR)
  Receive Date: 20131101
  Receipt Date: 20131101
  Transmission Date: 20140711
  Serious: Yes (Hospitalization)
  Sender: FDA-Public Use
  Company Number: FR-SA-2013SA109157

PATIENT
  Age: 53 Year
  Sex: Female

DRUGS (8)
  1. ROVAMYCINE [Suspect]
     Indication: LUNG DISORDER
     Dosage: DOSAGE: 1MIU TID?DAILY DOSE : 3 MIU
     Route: 048
     Dates: start: 20130831, end: 20130905
  2. LOVENOX [Suspect]
     Indication: THROMBOSIS PROPHYLAXIS
     Route: 058
     Dates: start: 20130831, end: 20130904
  3. AUGMENTIN [Suspect]
     Indication: LUNG DISORDER
     Route: 048
     Dates: start: 20130831, end: 20130905
  4. CONTRAMAL [Suspect]
     Indication: ARTHRALGIA
     Route: 048
     Dates: start: 20130831
  5. TRAMADOL HYDROCHLORIDE [Suspect]
     Indication: ARTHRALGIA
     Route: 048
     Dates: start: 20130902
  6. KARDEGIC [Concomitant]
     Route: 048
  7. IXPRIM [Concomitant]
  8. TEMERIT [Concomitant]

REACTIONS (2)
  - Leukopenia [Not Recovered/Not Resolved]
  - Neutropenia [Not Recovered/Not Resolved]
